FAERS Safety Report 21609434 (Version 1)
Quarter: 2022Q4

REPORT INFORMATION
  Report Type: Spontaneous
  Country: US (occurrence: US)
  Receive Date: 20221117
  Receipt Date: 20221117
  Transmission Date: 20230113
  Serious: No
  Sender: FDA-Public Use
  Company Number: US-TAKEDA-2022TUS086219

PATIENT
  Sex: Male

DRUGS (1)
  1. LIVTENCITY [Suspect]
     Active Substance: MARIBAVIR
     Indication: Myelodysplastic syndrome
     Dosage: 200 MILLIGRAM, BID
     Route: 048
     Dates: start: 20221101

REACTIONS (3)
  - Product use in unapproved indication [Unknown]
  - Diarrhoea [Unknown]
  - Taste disorder [Unknown]
